FAERS Safety Report 6663636-3 (Version None)
Quarter: 2010Q2

REPORT INFORMATION
  Report Type: 
  Country: None (occurrence: None)
  Receive Date: 20100401
  Receipt Date: 20100326
  Transmission Date: 20101027
  Serious: Yes (Disabling)
  Sender: FDA-Public Use
  Company Number: EC-ROCHE-689706

PATIENT
  Sex: Male
  Weight: 79.4 kg

DRUGS (1)
  1. AVASTIN [Suspect]
     Indication: RENAL CANCER
     Route: 042
     Dates: start: 20100101

REACTIONS (3)
  - DEPRESSION [None]
  - DIZZINESS [None]
  - VOMITING [None]
